FAERS Safety Report 8499380-X (Version None)
Quarter: 2012Q3

REPORT INFORMATION
  Report Type: 
  Country: None (occurrence: None)
  Receive Date: 20120710
  Receipt Date: 20120628
  Transmission Date: 20120928
  Serious: Yes (Other)
  Sender: FDA-Public Use
  Company Number: US-VERTEX PHARMACEUTICALS INC.-AE-2012-009755

PATIENT
  Sex: Female
  Weight: 81.7 kg

DRUGS (8)
  1. BACLOFEN [Concomitant]
  2. INCIVEK [Suspect]
     Indication: HEPATITIS C
     Route: 048
     Dates: start: 20120301
  3. PEGASYS [Concomitant]
     Indication: HEPATITIS C
     Route: 058
     Dates: start: 20120301
  4. RIBASPHERE [Concomitant]
     Indication: HEPATITIS C
     Route: 048
     Dates: start: 20120301
  5. FUROSEMIDE [Concomitant]
  6. VITAMIN D [Concomitant]
  7. SPIRONOLACTONE [Concomitant]
  8. RAMIPRIL [Concomitant]

REACTIONS (2)
  - HEPATIC FAILURE [None]
  - BACTERIAL INFECTION [None]
